FAERS Safety Report 5567526-9 (Version None)
Quarter: 2007Q4

REPORT INFORMATION
  Report Type: 
  Country: None (occurrence: None)
  Receive Date: 20071214
  Receipt Date: 20071105
  Transmission Date: 20080405
  Serious: Yes (Other)
  Sender: FDA-Public Use
  Company Number: 2007S1011511

PATIENT
  Age: 26 Year
  Sex: Male

DRUGS (3)
  1. NIFEDIPINE [Suspect]
     Indication: HYPERTENSION
     Dosage: 30 MG
     Dates: start: 19840619, end: 19840625
  2. NIFEDIPINE [Suspect]
     Indication: HYPERTENSION
     Dosage: 30 MG
     Dates: start: 19840804, end: 19840811
  3. CHLORPROMAZINE [Suspect]
     Dosage: 400 MG; INTRAMUSCULAR
     Route: 030
     Dates: end: 19840728

REACTIONS (1)
  - OCULOGYRIC CRISIS [None]
